FAERS Safety Report 6827145-0 (Version None)
Quarter: 2010Q3

REPORT INFORMATION
  Report Type: 
  Country: None (occurrence: None)
  Receive Date: 20100709
  Receipt Date: 20100628
  Transmission Date: 20110219
  Serious: Yes (Other)
  Sender: FDA-Public Use
  Company Number: US-JNJCH-2010014068

PATIENT
  Sex: Female

DRUGS (2)
  1. ROGAINE REGULAR STRENGTH FOR MEN [Suspect]
     Indication: ALOPECIA
     Dosage: TEXT:UNSPECIFIED TWICE DAILY
     Route: 061
  2. ROGAINE [Suspect]
     Indication: PRODUCT USED FOR UNKNOWN INDICATION
     Dosage: TEXT:UNSPECIFIED
     Route: 065

REACTIONS (3)
  - ALOPECIA [None]
  - DEPENDENCE [None]
  - DRUG INEFFECTIVE [None]
